FAERS Safety Report 4821922-3 (Version None)
Quarter: 2005Q4

REPORT INFORMATION
  Report Type: 
  Country: None (occurrence: None)
  Receive Date: 20051103
  Receipt Date: 20051017
  Transmission Date: 20060501
  Serious: Yes (Other)
  Sender: FDA-Public Use
  Company Number: DE_051017222

PATIENT
  Age: 77 Year
  Sex: Female

DRUGS (8)
  1. FORSTEO (TERIPARATIDE) [Suspect]
     Indication: OSTEOPOROSIS
     Dates: start: 20040101, end: 20050101
  2. FORSTEO (TERIPARATIDE) [Suspect]
     Indication: SPINAL FRACTURE
     Dates: start: 20040101, end: 20050101
  3. THYRONJOD [Concomitant]
  4. ACIMETHIN (METHINIONINE) [Concomitant]
  5. VITAMIN D [Concomitant]
  6. ISOPTIN MITE (VERAPAMIL HYDROCHLORIDE) [Concomitant]
  7. FUROSEMIDE [Concomitant]
  8. ADALAT [Concomitant]

REACTIONS (5)
  - BONE PAIN [None]
  - DIZZINESS [None]
  - GENERALISED OEDEMA [None]
  - HYPERTENSIVE CRISIS [None]
  - NAUSEA [None]
